FAERS Safety Report 7444533-2 (Version None)
Quarter: 2011Q2

REPORT INFORMATION
  Report Type: 
  Country: None (occurrence: None)
  Receive Date: 20110419
  Receipt Date: 20110408
  Transmission Date: 20111010
  Serious: Yes (Death, Hospitalization)
  Sender: FDA-Public Use
  Company Number: 115377

PATIENT
  Age: 7 Year
  Sex: Female

DRUGS (2)
  1. CISPLATIN [Suspect]
     Indication: PITUITARY TUMOUR
  2. ETOPOSIDE [Suspect]
     Indication: PITUITARY TUMOUR

REACTIONS (7)
  - VISUAL IMPAIRMENT [None]
  - CONVULSION [None]
  - MENTAL IMPAIRMENT [None]
  - NUCLEAR MAGNETIC RESONANCE IMAGING BRAIN ABNORMAL [None]
  - POSTERIOR REVERSIBLE ENCEPHALOPATHY SYNDROME [None]
  - ELECTROENCEPHALOGRAM ABNORMAL [None]
  - HEADACHE [None]
